FAERS Safety Report 4475142-5 (Version None)
Quarter: 2004Q4

REPORT INFORMATION
  Report Type: 
  Country: None (occurrence: None)
  Receive Date: 20041013
  Receipt Date: 20041013
  Transmission Date: 20050328
  Serious: Yes (Other)
  Sender: FDA-Public Use
  Company Number: None

PATIENT
  Age: 50 Year
  Sex: Female
  Weight: 83.9154 kg

DRUGS (1)
  1. ATORVASTATIN 20 MG MERCK [Suspect]
     Indication: HYPERCHOLESTEROLAEMIA
     Dosage: 5 MG QOD ORAL
     Route: 048
     Dates: start: 20040929, end: 20041011

REACTIONS (2)
  - DIZZINESS [None]
  - PRURITUS [None]
